FAERS Safety Report 7709310-3 (Version None)
Quarter: 2011Q3

REPORT INFORMATION
  Report Type: 
  Country: None (occurrence: None)
  Receive Date: 20110825
  Receipt Date: 20110816
  Transmission Date: 20111222
  Serious: Yes (Hospitalization)
  Sender: FDA-Public Use
  Company Number: FR-ALLERGAN-1111084US

PATIENT
  Age: 76 Year
  Sex: Male

DRUGS (9)
  1. BISOPROLOL FUMARATE [Concomitant]
     Dosage: 5 MG, QD
  2. LERCANIDIPINE [Concomitant]
     Dosage: 10 MG, QD
  3. LORAZEPAM [Concomitant]
     Dosage: 2 MG, QD
  4. TRAMADOL HCL [Concomitant]
     Dosage: 6 DF, QD
  5. LANSOPRAZOLE [Concomitant]
     Dosage: 30 MG, QD
  6. ZOLPIDEM [Concomitant]
     Dosage: 10 MG, QD
  7. PINAVERIUM BROMIDE [Concomitant]
  8. BOTOX [Suspect]
     Indication: TORTICOLLIS
     Dosage: UNK
     Route: 030
  9. ARTANE [Concomitant]
     Dosage: 2 DF, QD

REACTIONS (4)
  - DYSPNOEA [None]
  - DYSKINESIA [None]
  - DYSPHONIA [None]
  - DYSPHAGIA [None]
